FAERS Safety Report 15188533 (Version 1)
Quarter: 2018Q3

REPORT INFORMATION
  Report Type: Spontaneous
  Country: US (occurrence: US)
  Receive Date: 20180625
  Receipt Date: 20180625
  Transmission Date: 20181010
  Serious: Yes (Hospitalization)
  Sender: FDA-Public Use
  Company Number: None

PATIENT
  Age: 45 Year
  Sex: Male
  Weight: 74.1 kg

DRUGS (1)
  1. OCREVUS [Suspect]
     Active Substance: OCRELIZUMAB
     Indication: MULTIPLE SCLEROSIS
     Route: 042
     Dates: start: 20170929, end: 20171017

REACTIONS (6)
  - Babesiosis [None]
  - Immunosuppression [None]
  - Fatigue [None]
  - Fall [None]
  - Thrombocytopenia [None]
  - Haemolysis [None]

NARRATIVE: CASE EVENT DATE: 20180130
